FAERS Safety Report 11779086 (Version 1)
Quarter: 2015Q4

REPORT INFORMATION
  Report Type: Spontaneous
  Country: TR (occurrence: TR)
  Receive Date: 20151125
  Receipt Date: 20151125
  Transmission Date: 20160304
  Serious: Yes (Hospitalization)
  Sender: FDA-Public Use
  Company Number: TR-BANPHARM-20154453

PATIENT
  Age: 47 Year
  Sex: Female

DRUGS (1)
  1. AMANTADINE UNKNOWN PRODUCT [Suspect]
     Active Substance: AMANTADINE

REACTIONS (2)
  - Electrocardiogram QRS complex prolonged [Recovered/Resolved]
  - Ventricular tachycardia [Recovered/Resolved]
